FAERS Safety Report 7883180-5 (Version None)
Quarter: 2011Q4

REPORT INFORMATION
  Report Type: 
  Country: None (occurrence: None)
  Receive Date: 20111031
  Receipt Date: 20111018
  Transmission Date: 20120403
  Serious: Yes (Death, Congenital Anomaly)
  Sender: FDA-Public Use
  Company Number: FK201102413

PATIENT
  Sex: Male

DRUGS (2)
  1. METHOTREXATE [Suspect]
     Indication: ECTOPIC PREGNANCY
     Dosage: 87 MG, INTRAMUSCULAR
     Route: 030
  2. FOLIC ACID [Concomitant]

REACTIONS (9)
  - FALLOT'S TETRALOGY [None]
  - PULMONARY MALFORMATION [None]
  - SINGLE UMBILICAL ARTERY [None]
  - INTRA-UTERINE DEATH [None]
  - CONGENITAL CHOROID PLEXUS CYST [None]
  - MATERNAL DRUGS AFFECTING FOETUS [None]
  - MULTIPLE CONGENITAL ABNORMALITIES [None]
  - PERICARDIAL EFFUSION [None]
  - SKIN OEDEMA [None]
